FAERS Safety Report 19471804 (Version 2)
Quarter: 2021Q3

REPORT INFORMATION
  Report Type: Other
  Country: US (occurrence: US)
  Receive Date: 20210629
  Receipt Date: 20210710
  Transmission Date: 20211014
  Serious: Yes (Death)
  Sender: FDA-Public Use
  Company Number: US-ROCHE-2859015

PATIENT
  Sex: Male

DRUGS (12)
  1. LUCENTIS [Suspect]
     Active Substance: RANIBIZUMAB
  2. LUCENTIS [Suspect]
     Active Substance: RANIBIZUMAB
     Indication: TYPE 1 DIABETES MELLITUS
  3. LUCENTIS [Suspect]
     Active Substance: RANIBIZUMAB
  4. LUCENTIS [Suspect]
     Active Substance: RANIBIZUMAB
  5. LUCENTIS [Suspect]
     Active Substance: RANIBIZUMAB
     Indication: TYPE 2 DIABETES MELLITUS
     Dosage: INJECT 0.3MG (0.05ML) INTRAVITREALLY MONTHLY AS DI. SYRINGE
     Route: 050
  6. LUCENTIS [Suspect]
     Active Substance: RANIBIZUMAB
     Indication: DIABETIC RETINOPATHY
  7. LUCENTIS [Suspect]
     Active Substance: RANIBIZUMAB
  8. LUCENTIS [Suspect]
     Active Substance: RANIBIZUMAB
  9. LUCENTIS [Suspect]
     Active Substance: RANIBIZUMAB
  10. LUCENTIS [Suspect]
     Active Substance: RANIBIZUMAB
     Indication: MACULAR OEDEMA
  11. LUCENTIS [Suspect]
     Active Substance: RANIBIZUMAB
  12. LUCENTIS [Suspect]
     Active Substance: RANIBIZUMAB

REACTIONS (1)
  - Death [Fatal]
